FAERS Safety Report 6915690-9 (Version None)
Quarter: 2010Q3

REPORT INFORMATION
  Report Type: 
  Country: None (occurrence: None)
  Receive Date: 20100810
  Receipt Date: 20100802
  Transmission Date: 20110219
  Serious: Yes (Hospitalization)
  Sender: FDA-Public Use
  Company Number: US-JNJFOC-20100705923

PATIENT
  Sex: Male
  Weight: 99.79 kg

DRUGS (21)
  1. FENTANYL CITRATE [Suspect]
     Indication: SPINAL COLUMN STENOSIS
     Dosage: NDC: 0781-7240-55
     Route: 062
  2. TOPAMAX [Concomitant]
     Indication: MIGRAINE PROPHYLAXIS
     Route: 048
  3. LANTUS [Concomitant]
     Indication: DIABETES MELLITUS
     Dosage: 70 UNITS
     Route: 058
  4. HUMALOG [Concomitant]
     Indication: DIABETES MELLITUS
     Dosage: 6 UNITS BEFORE MEALS
     Route: 058
  5. HUMALOG [Concomitant]
     Dosage: SLIDING SACLE/BEFORE MEALS
     Route: 058
  6. COLACE [Concomitant]
     Indication: ABNORMAL FAECES
     Route: 048
  7. PROMETHAZINE [Concomitant]
     Indication: ABDOMINAL DISCOMFORT
     Dosage: AS NEEDED
     Route: 048
  8. PLAVIX [Concomitant]
     Indication: ANTICOAGULANT THERAPY
     Route: 048
  9. TRAZODONE [Concomitant]
     Indication: DRUG THERAPY
     Route: 048
  10. CITALOPRAM [Concomitant]
     Indication: MENTAL DISORDER
     Route: 048
  11. OMEPRAZOLE [Concomitant]
     Indication: GASTROOESOPHAGEAL REFLUX DISEASE
     Route: 048
  12. VITAMIN B3 [Concomitant]
     Indication: HYPOVITAMINOSIS
     Dosage: 5000 UNITS
     Route: 048
  13. PRAVASTATIN [Concomitant]
     Indication: BLOOD CHOLESTEROL
     Route: 048
  14. LISINOPRIL [Concomitant]
     Indication: RENAL DISORDER
     Route: 048
  15. SPIRONOLACTONE [Concomitant]
     Indication: DIURETIC THERAPY
     Route: 048
  16. SEROQUEL [Concomitant]
     Indication: BIPOLAR DISORDER
  17. GEMFIBROZIL [Concomitant]
     Indication: BLOOD CHOLESTEROL
     Route: 048
  18. NEURONTIN [Concomitant]
     Indication: NEUROPATHY PERIPHERAL
     Route: 048
  19. VITAMIN B-12 [Concomitant]
     Indication: HYPOVITAMINOSIS
     Dosage: 1000 UNITS
     Route: 065
  20. PERCOCET [Concomitant]
     Indication: PAIN
     Dosage: 5/325 MG/1 0R 2 TABS/AS NEEDED EVERY 6 HOURS
     Route: 065
  21. IMITREX [Concomitant]
     Indication: PRODUCT USED FOR UNKNOWN INDICATION
     Route: 065

REACTIONS (3)
  - ANXIETY [None]
  - CHEST PAIN [None]
  - WRONG TECHNIQUE IN DRUG USAGE PROCESS [None]
